FAERS Safety Report 4432321-0 (Version None)
Quarter: 2004Q3

REPORT INFORMATION
  Report Type: 
  Country: None (occurrence: None)
  Receive Date: 20040820
  Receipt Date: 20040806
  Transmission Date: 20050211
  Serious: No
  Sender: FDA-Public Use
  Company Number: 04P-007-0269876-00

PATIENT
  Sex: 0

DRUGS (2)
  1. VALPROATE SODIUM [Suspect]
     Indication: EPILEPSY
  2. TOPIRAMATE [Suspect]
     Indication: EPILEPSY

REACTIONS (8)
  - ATAXIA [None]
  - CONFUSIONAL STATE [None]
  - CONVULSION [None]
  - DRUG INTERACTION [None]
  - DYSARTHRIA [None]
  - ENCEPHALOPATHY [None]
  - HYPERAMMONAEMIA [None]
  - SOMNOLENCE [None]
